FAERS Safety Report 8075428-1 (Version None)
Quarter: 2012Q1

REPORT INFORMATION
  Report Type: 
  Country: None (occurrence: None)
  Receive Date: 20120120
  Receipt Date: 20120113
  Transmission Date: 20120608
  Serious: Yes (Other)
  Sender: FDA-Public Use
  Company Number: 2012MA000689

PATIENT
  Age: 56 Year
  Sex: Male

DRUGS (1)
  1. METFORMIN HCL [Suspect]
     Indication: DIABETES MELLITUS
     Dosage: 500 MG;BID;PO
     Route: 048
     Dates: start: 20111116, end: 20111208

REACTIONS (4)
  - SUICIDAL IDEATION [None]
  - EMOTIONAL DISORDER [None]
  - APATHY [None]
  - BEREAVEMENT [None]
